FAERS Safety Report 9626191 (Version 2)
Quarter: 2013Q4

REPORT INFORMATION
  Report Type: Spontaneous
  Country: US (occurrence: US)
  Receive Date: 20131016
  Receipt Date: 20131122
  Transmission Date: 20140711
  Serious: Yes (Other)
  Sender: FDA-Public Use
  Company Number: US-PFIZER INC-2013292117

PATIENT
  Age: 63 Year
  Sex: Female
  Weight: 72.56 kg

DRUGS (4)
  1. XALATAN [Suspect]
     Indication: GLAUCOMA
     Dosage: UNK, 2X/DAY
     Route: 047
  2. VYTORIN [Concomitant]
     Dosage: EZETIMIBE 10MG / SIMVASTATIN 40 MG, DAILY
  3. GLIPIZIDE XL [Concomitant]
     Dosage: 2.5 MG, 2X/DAY
  4. QUINAPRIL [Concomitant]
     Dosage: 20 MG, DAILY

REACTIONS (3)
  - Diabetes mellitus [Not Recovered/Not Resolved]
  - Hypertension [Not Recovered/Not Resolved]
  - Inappropriate schedule of drug administration [Not Recovered/Not Resolved]
